FAERS Safety Report 9293898 (Version 1)
Quarter: 2013Q1

REPORT INFORMATION
  Report Type: Spontaneous
  Country: US (occurrence: None)
  Receive Date: 20121214
  Receipt Date: 20121214
  Transmission Date: 20140127
  Serious: Yes (Other)
  Sender: FDA-Public Use
  Company Number: 1209USA001196

PATIENT
  Age: 69 Year
  Sex: Male

DRUGS (9)
  1. JANUVIA [Suspect]
     Indication: TYPE 2 DIABETES MELLITUS
     Route: 048
     Dates: end: 20120812
  2. AMBIEN (ZOLPIDEM TARTRATE) [Concomitant]
  3. AMLODIPINE (AMLODIPINE) [Concomitant]
  4. AVODART (DUTASTERIDE) CAPSULES [Concomitant]
  5. FLEXERIL (CYCLOBENZAPRINE HYDRPCHLORIDE) [Concomitant]
  6. HYDROCODONE (HYDROCODONE) [Concomitant]
  7. LEVOTHYROXINE SODIUM (LEVOTHYROXONE SODIUM) [Concomitant]
  8. METFORMIN (METFORMIN) [Concomitant]
  9. SIMVASTATIN (SIMVASTATIN) [Concomitant]

REACTIONS (1)
  - Pancreatitis [None]
